FAERS Safety Report 20840859 (Version 1)
Quarter: 2022Q2

REPORT INFORMATION
  Report Type: Spontaneous
  Country: US (occurrence: None)
  Receive Date: 20220517
  Receipt Date: 20220517
  Transmission Date: 20220720
  Serious: Yes (Hospitalization)
  Sender: FDA-Public Use
  Company Number: None

PATIENT
  Age: 9 Week
  Sex: Female
  Weight: 13.95 kg

DRUGS (1)
  1. ETHYL ALCOHOL ANTISEPTIC HAND SANITIZER [Suspect]
     Active Substance: ALCOHOL
     Indication: COVID-19 prophylaxis
     Route: 061
     Dates: start: 20200401, end: 20201001

REACTIONS (1)
  - Seizure [None]

NARRATIVE: CASE EVENT DATE: 20200805
